FAERS Safety Report 21332397 (Version 2)
Quarter: 2022Q4

REPORT INFORMATION
  Report Type: Spontaneous
  Country: US (occurrence: US)
  Receive Date: 20220914
  Receipt Date: 20221229
  Transmission Date: 20230113
  Serious: Yes (Hospitalization)
  Sender: FDA-Public Use
  Company Number: US-BRISTOL-MYERS SQUIBB COMPANY-2022-104450

PATIENT
  Age: 70 Year
  Sex: Male

DRUGS (16)
  1. REVLIMID [Suspect]
     Active Substance: LENALIDOMIDE
     Indication: Plasma cell myeloma
     Dosage: ONCE DAILY 21 DAYS ON AND 7DAYS OFF
     Route: 048
     Dates: start: 202202
  2. REVLIMID [Suspect]
     Active Substance: LENALIDOMIDE
     Dosage: ONCE DAILY 21 DAYS ON AND 7DAYS OFF
     Route: 048
     Dates: start: 20220310, end: 20220902
  3. REVLIMID [Suspect]
     Active Substance: LENALIDOMIDE
     Route: 048
     Dates: start: 202202
  4. TRIAMCINOLONE [Concomitant]
     Active Substance: TRIAMCINOLONE
     Dosage: AEROSOL SPRAY INHALATION AS DIRECTED
     Route: 045
     Dates: start: 20211213
  5. TRIAMCINOLONE [Concomitant]
     Active Substance: TRIAMCINOLONE
     Dosage: 0.1% CREAM 1 APPLICATION TOPICAL BID
     Route: 061
     Dates: start: 20211213
  6. ASPIRIN [Concomitant]
     Active Substance: ASPIRIN
     Dosage: ASPIRIN/CAFFEINE 1 PACKET AS DIRECTED
     Route: 048
     Dates: start: 20220808
  7. ACYCLOVIR [Concomitant]
     Active Substance: ACYCLOVIR
     Route: 048
     Dates: start: 20220829
  8. DEXAMETHASONE [Concomitant]
     Active Substance: DEXAMETHASONE
     Route: 048
     Dates: start: 20221114
  9. PREDNISONE [Concomitant]
     Active Substance: PREDNISONE
     Dosage: AS DIRECTED ON DOSE PACK
     Route: 048
     Dates: start: 20220808
  10. ALBUTEROL SULFATE [Concomitant]
     Active Substance: ALBUTEROL SULFATE
     Dosage: 90 MCG/ACTUATION, 2 INHALATIONS AS DIRECTED
     Route: 055
     Dates: start: 20211213
  11. Fluticasone-Salmeterol [Concomitant]
     Dosage: 250 MCG-50MCG/ CLOSE BLISTER WITH DEVICE 1 PUFF BY INHALATION BID
     Route: 055
     Dates: start: 20211213
  12. Cinnamon bark/Chromium/ala [Concomitant]
     Route: 048
     Dates: start: 20220307
  13. NAPROXEN [Concomitant]
     Active Substance: NAPROXEN
     Dosage: PRN
     Route: 048
     Dates: start: 20211213
  14. VITAMIN D3 [Concomitant]
     Active Substance: CHOLECALCIFEROL
     Dosage: (MV-MN/IRON/FOLIC ACID/HERB 190)
     Route: 048
     Dates: start: 20220307
  15. VITAMIN D3 [Concomitant]
     Active Substance: CHOLECALCIFEROL
     Dosage: (MV-MN/IRON/FOLIC ACID/HERB 190)
     Route: 048
     Dates: start: 20220307
  16. OMEGA-3 FATTY ACIDS [Concomitant]
     Active Substance: OMEGA-3 FATTY ACIDS
     Route: 048
     Dates: start: 20220307

REACTIONS (1)
  - Rash macular [Recovered/Resolved]

NARRATIVE: CASE EVENT DATE: 20220901
